FAERS Safety Report 11572006 (Version 1)
Quarter: 2015Q3

REPORT INFORMATION
  Report Type: Spontaneous
  Country: US (occurrence: US)
  Receive Date: 20150929
  Receipt Date: 20150929
  Transmission Date: 20151125
  Serious: No
  Sender: FDA-Public Use
  Company Number: US-SA-2015SA130140

PATIENT
  Age: 61 Year
  Sex: Female

DRUGS (1)
  1. AUBAGIO [Suspect]
     Active Substance: TERIFLUNOMIDE
     Indication: MULTIPLE SCLEROSIS
     Route: 065
     Dates: start: 20150508, end: 20150826

REACTIONS (5)
  - Diarrhoea [Not Recovered/Not Resolved]
  - Depression [Not Recovered/Not Resolved]
  - Hypoaesthesia [Unknown]
  - Neuropathy peripheral [Unknown]
  - Paraesthesia [Unknown]

NARRATIVE: CASE EVENT DATE: 20150823
